FAERS Safety Report 6431750-3 (Version None)
Quarter: 2009Q4

REPORT INFORMATION
  Report Type: 
  Country: None (occurrence: None)
  Receive Date: 20091104
  Receipt Date: 20091016
  Transmission Date: 20100525
  Serious: Yes (Hospitalization)
  Sender: FDA-Public Use
  Company Number: IMP_04301_2009

PATIENT
  Sex: Female
  Weight: 68.0396 kg

DRUGS (1)
  1. MINOCYCLINE HCL [Suspect]
     Indication: ACNE
     Dosage: 100 MG QD, 100 MG ORAL
     Route: 048
     Dates: start: 20080601, end: 20080728

REACTIONS (11)
  - BACTERAEMIA [None]
  - BONE MARROW FAILURE [None]
  - BONE MARROW TRANSPLANT [None]
  - CHILLS [None]
  - HAEMORRHOIDS [None]
  - IMMUNE SYSTEM DISORDER [None]
  - MALAISE [None]
  - NEUTROPENIA [None]
  - PAIN [None]
  - PSEUDOMONAS INFECTION [None]
  - PYREXIA [None]
